FAERS Safety Report 7724995-3 (Version None)
Quarter: 2011Q3

REPORT INFORMATION
  Report Type: 
  Country: None (occurrence: None)
  Receive Date: 20110901
  Receipt Date: 20110822
  Transmission Date: 20111222
  Serious: Yes (Hospitalization, Disabling, Other)
  Sender: FDA-Public Use
  Company Number: JP-CELGENEUS-087-21880-11030464

PATIENT
  Sex: Male

DRUGS (15)
  1. DASEN [Concomitant]
     Indication: PROPHYLAXIS
     Dosage: 30 MILLIGRAM
     Route: 048
     Dates: start: 20110215, end: 20110219
  2. METHYLCOBAL [Concomitant]
     Dosage: 500 UG
     Route: 048
     Dates: start: 20110215
  3. DEXAMETHASONE [Concomitant]
     Indication: MULTIPLE MYELOMA
     Dosage: .5 MILLIGRAM
     Route: 048
     Dates: start: 20110118, end: 20110118
  4. OLOPATADINE HCL [Concomitant]
     Indication: PROPHYLAXIS
     Dosage: 5 MILLIGRAM
     Route: 048
     Dates: start: 20110118
  5. MAGMITT [Concomitant]
     Indication: PROPHYLAXIS
     Dosage: 990 MILLIGRAM
     Route: 048
     Dates: start: 20110118
  6. CYCLOPHOSPHAMIDE [Suspect]
     Dosage: 100 MILLIGRAM
     Route: 048
     Dates: start: 20110118, end: 20110214
  7. CYCLOPHOSPHAMIDE [Suspect]
     Dosage: 100 MILLIGRAM
     Route: 048
     Dates: start: 20110215, end: 20110302
  8. DEXAMETHASONE [Concomitant]
     Dosage: .5 MILLIGRAM
     Route: 048
     Dates: start: 20110215, end: 20110215
  9. OXYCONTIN [Concomitant]
     Dosage: 80 MILLIGRAM
     Route: 048
     Dates: start: 20110118
  10. ITRACONAZOLE [Concomitant]
     Dosage: 200 MILLIGRAM
     Route: 048
     Dates: start: 20110118
  11. ZOLPIDEM [Concomitant]
     Indication: PROPHYLAXIS
     Dosage: 10 MILLIGRAM
     Route: 048
     Dates: start: 20110118
  12. REVLIMID [Suspect]
     Dosage: 10 MILLIGRAM
     Route: 048
     Dates: start: 20110215, end: 20110302
  13. HARNAL D [Concomitant]
     Indication: INFECTION
     Dosage: .2 MILLIGRAM
     Route: 048
     Dates: start: 20110118
  14. REVLIMID [Suspect]
     Indication: MULTIPLE MYELOMA
     Dosage: 10 MILLIGRAM
     Route: 048
     Dates: start: 20110118, end: 20110207
  15. LYRICA [Concomitant]
     Dosage: 75 MILLIGRAM
     Route: 048
     Dates: start: 20110201

REACTIONS (1)
  - CYSTITIS HAEMORRHAGIC [None]
